FAERS Safety Report 12547649 (Version 1)
Quarter: 2016Q3

REPORT INFORMATION
  Report Type: Report from Study
  Country: CA (occurrence: CA)
  Receive Date: 20160712
  Receipt Date: 20160712
  Transmission Date: 20161109
  Serious: Yes (Other)
  Sender: FDA-Public Use
  Company Number: CA-AMGEN-CANSL2016087355

PATIENT
  Sex: Female

DRUGS (1)
  1. ARANESP [Suspect]
     Active Substance: DARBEPOETIN ALFA
     Indication: PRODUCT USED FOR UNKNOWN INDICATION
     Dosage: 20 MUG, UNK
     Route: 065
     Dates: start: 20160630

REACTIONS (4)
  - Lethargy [Unknown]
  - Somnolence [Unknown]
  - Peripheral swelling [Unknown]
  - Renal impairment [Not Recovered/Not Resolved]
